FAERS Safety Report 8823466 (Version 2)
Quarter: 2013Q2

REPORT INFORMATION
  Report Type: Spontaneous
  Country: US (occurrence: US)
  Receive Date: 20121003
  Receipt Date: 20130411
  Transmission Date: 20140414
  Serious: No
  Sender: FDA-Public Use
  Company Number: US-009507513-1210USA001591

PATIENT
  Age: 30 Year
  Sex: Female
  Weight: 185 kg

DRUGS (1)
  1. ELAVIL (MADE BY MERCK, MARKETED BY ZENECA) [Suspect]
     Dosage: UNK
     Route: 048

REACTIONS (2)
  - Drug hypersensitivity [Unknown]
  - Agitation [Recovered/Resolved]
